FAERS Safety Report 18744385 (Version 2)
Quarter: 2021Q1

REPORT INFORMATION
  Report Type: Spontaneous
  Country: US (occurrence: US)
  Receive Date: 20210115
  Receipt Date: 20210120
  Transmission Date: 20210419
  Serious: Yes (Other)
  Sender: FDA-Public Use
  Company Number: US-AUROBINDO-AUR-APL-2021-001437

PATIENT
  Age: 43 Year
  Sex: Male

DRUGS (1)
  1. IBUPROFEN. [Suspect]
     Active Substance: IBUPROFEN
     Indication: PRODUCT USED FOR UNKNOWN INDICATION
     Dosage: UNK UNK, ONCE A DAY
     Route: 065

REACTIONS (5)
  - Oedema [Unknown]
  - Nephrotic syndrome [Recovered/Resolved]
  - Proteinuria [Unknown]
  - Tubulointerstitial nephritis [Recovered/Resolved]
  - Glomerulonephritis minimal lesion [Recovered/Resolved]
